FAERS Safety Report 18609317 (Version 3)
Quarter: 2021Q1

REPORT INFORMATION
  Report Type: Spontaneous
  Country: JP (occurrence: JP)
  Receive Date: 20201214
  Receipt Date: 20210120
  Transmission Date: 20210419
  Serious: Yes (Hospitalization)
  Sender: FDA-Public Use
  Company Number: JP-JNJFOC-20201220988

PATIENT
  Age: 8 Decade
  Sex: Male

DRUGS (4)
  1. REMINYL [Suspect]
     Active Substance: GALANTAMINE
     Indication: COGNITIVE DISORDER
     Route: 048
  2. REMINYL [Suspect]
     Active Substance: GALANTAMINE
     Route: 048
  3. REMINYL [Suspect]
     Active Substance: GALANTAMINE
     Indication: COGNITIVE DISORDER
     Route: 048
  4. REMINYL [Suspect]
     Active Substance: GALANTAMINE
     Route: 048

REACTIONS (2)
  - Cardiac failure [Unknown]
  - Blood creatine phosphokinase increased [Recovered/Resolved]
